FAERS Safety Report 9352551 (Version 1)
Quarter: 2013Q2

REPORT INFORMATION
  Report Type: Spontaneous
  Country: US (occurrence: US)
  Receive Date: 20130618
  Receipt Date: 20130618
  Transmission Date: 20140414
  Serious: No
  Sender: FDA-Public Use
  Company Number: US-009507513-1306USA003742

PATIENT
  Sex: Female

DRUGS (3)
  1. ASMANEX TWISTHALER [Suspect]
     Indication: ASTHMA
     Dosage: 220 MCG, QD
     Route: 055
     Dates: start: 201303
  2. ASMANEX TWISTHALER [Suspect]
     Indication: HYPERSENSITIVITY
  3. NEBULA [Concomitant]

REACTIONS (2)
  - Increased upper airway secretion [Recovering/Resolving]
  - Drug dose omission [Unknown]
